FAERS Safety Report 5773691 (Version 2)
Quarter: 2017Q3

REPORT INFORMATION
  Report Type: Report from Study
  Country: US (occurrence: US)
  Receive Date: 20050412
  Receipt Date: 20170816
  Transmission Date: 20171128
  Serious: Yes (Hospitalization)
  Sender: FDA-Public Use
  Company Number: US-JNJFOC-20050400388

PATIENT

DRUGS (1)
  1. INFLIXIMAB [Suspect]
     Active Substance: INFLIXIMAB
     Indication: COLITIS ULCERATIVE
     Dosage: 5-10 MG/KG
     Route: 042

REACTIONS (2)
  - Herpes zoster [Recovered/Resolved]
  - Colitis ulcerative [Recovered/Resolved]
